FAERS Safety Report 10070262 (Version 1)
Quarter: 2014Q2

REPORT INFORMATION
  Report Type: Spontaneous
  Country: US (occurrence: None)
  Receive Date: 20140408
  Receipt Date: 20140408
  Transmission Date: 20141212
  Serious: Yes (Other)
  Sender: FDA-Public Use
  Company Number: 2014US00340

PATIENT
  Age: 60 Year
  Sex: Male

DRUGS (3)
  1. CARBOPLATIN (CARBOPLATIN) INJECTION [Suspect]
     Indication: SMALL CELL LUNG CANCER METASTATIC
  2. ETOPOSIDE (ETOPOSIDE) [Suspect]
     Indication: SMALL CELL LUNG CANCER METASTATIC
  3. RADIATION (RADIATION) [Suspect]
     Indication: SMALL CELL LUNG CANCER METASTATIC

REACTIONS (4)
  - Disease progression [None]
  - Anaemia [None]
  - Bone lesion [None]
  - Extradural neoplasm [None]
